FAERS Safety Report 7893368-5 (Version None)
Quarter: 2011Q4

REPORT INFORMATION
  Report Type: 
  Country: None (occurrence: None)
  Receive Date: 20111104
  Receipt Date: 20111028
  Transmission Date: 20120403
  Serious: Yes (Hospitalization)
  Sender: FDA-Public Use
  Company Number: JP-ROCHE-1008947

PATIENT
  Sex: Female
  Weight: 48 kg

DRUGS (8)
  1. LENDORMIN D [Concomitant]
     Indication: INSOMNIA
     Route: 048
     Dates: start: 20111008
  2. TARCEVA [Suspect]
     Indication: NON-SMALL CELL LUNG CANCER
     Route: 048
     Dates: start: 20111006, end: 20111028
  3. KARY UNI [Concomitant]
     Indication: CATARACT
     Dosage: 1-2 DROPSX3
     Route: 047
     Dates: start: 20100401
  4. AVASTIN [Suspect]
     Indication: NON-SMALL CELL LUNG CANCER
     Route: 042
     Dates: start: 20111006, end: 20111006
  5. CLINDAMYCIN PHOSPHATE [Concomitant]
     Indication: RASH
     Dosage: PROPER PROPER QUANTITY
     Route: 061
     Dates: start: 20111019
  6. HYALEIN [Concomitant]
     Indication: GLAUCOMA
     Dosage: ONE DROPX5
     Route: 047
     Dates: start: 20110401
  7. AMLODIPINE [Concomitant]
     Indication: HYPERTENSION
     Route: 048
     Dates: start: 20111004
  8. MICARDIS [Concomitant]
     Indication: HYPERTENSION
     Route: 048
     Dates: start: 20111019

REACTIONS (1)
  - PNEUMOTHORAX [None]
